FAERS Safety Report 7745709-7 (Version None)
Quarter: 2011Q3

REPORT INFORMATION
  Report Type: 
  Country: None (occurrence: None)
  Receive Date: 20110829
  Receipt Date: 20110822
  Transmission Date: 20111222
  Serious: Yes (Life-Threatening, Hospitalization, Other)
  Sender: FDA-Public Use
  Company Number: 2010SP029881

PATIENT
  Age: 38 Year
  Sex: Female
  Weight: 53 kg

DRUGS (7)
  1. REBETOL [Suspect]
     Indication: HEPATITIS C
     Dosage: 600 MG;QD;PO 400 MG;QD;PO 200 MG;QD;PO
     Route: 048
     Dates: end: 20090724
  2. REBETOL [Suspect]
     Indication: HEPATITIS C
     Dosage: 600 MG;QD;PO 400 MG;QD;PO 200 MG;QD;PO
     Route: 048
     Dates: start: 20080711
  3. FAMOTIDINE [Concomitant]
  4. URSO 250 [Concomitant]
  5. PROHEPARUM (LIVER HYDROLYSATE COMBINED DRUG) [Concomitant]
  6. PEG-INTRON [Suspect]
     Indication: HEPATITIS C
     Dosage: 80 MCG;QW;SC
     Route: 058
     Dates: start: 20080711, end: 20090724
  7. MILMAG [Concomitant]

REACTIONS (7)
  - ACUTE HEPATIC FAILURE [None]
  - AUTOIMMUNE HEPATITIS [None]
  - HEPATIC NECROSIS [None]
  - HEPATITIS FULMINANT [None]
  - AUTOIMMUNE THYROIDITIS [None]
  - ANAEMIA [None]
  - HEPATIC ENCEPHALOPATHY [None]
